FAERS Safety Report 16376038 (Version 1)
Quarter: 2019Q2

REPORT INFORMATION
  Report Type: Spontaneous
  Country: US (occurrence: US)
  Receive Date: 20190531
  Receipt Date: 20190531
  Transmission Date: 20190711
  Serious: Yes (Hospitalization, Other)
  Sender: FDA-Public Use
  Company Number: US-ACCORD-130121

PATIENT
  Age: 63 Year
  Sex: Female

DRUGS (5)
  1. CINACALCET/CINACALCET HYDROCHLORIDE [Suspect]
     Active Substance: CINACALCET\CINACALCET HYDROCHLORIDE
     Indication: PRODUCT USED FOR UNKNOWN INDICATION
  2. TACROLIMUS. [Suspect]
     Active Substance: TACROLIMUS
     Indication: IMMUNOSUPPRESSION
  3. CARVEDILOL/CARVEDILOL HYDROCHLODRIDE [Concomitant]
     Indication: HYPERTENSION
  4. MYCOPHENOLATE MOFETIL/MYCOPHENOLATE SODIUM/MYCOPHENOLIC ACID [Suspect]
     Active Substance: MYCOPHENOLIC ACID
     Indication: IMMUNOSUPPRESSION
  5. PREDNISOLONE. [Suspect]
     Active Substance: PREDNISOLONE
     Indication: IMMUNOSUPPRESSION

REACTIONS (2)
  - Interstitial lung disease [Unknown]
  - Calcification metastatic [Unknown]
